FAERS Safety Report 23953703 (Version 1)
Quarter: 2024Q2

REPORT INFORMATION
  Report Type: Other
  Country: US (occurrence: US)
  Receive Date: 20240608
  Receipt Date: 20240608
  Transmission Date: 20240716
  Serious: Yes (Hospitalization, Other)
  Sender: FDA-Public Use
  Company Number: US-B.Braun Medical Inc.-2157900

PATIENT
  Age: 22 Year
  Sex: Male
  Weight: 136 kg

DRUGS (3)
  1. LEVETIRACETAM [Suspect]
     Active Substance: LEVETIRACETAM
     Indication: Status epilepticus
  2. PROPOFOL [Suspect]
     Active Substance: PROPOFOL
  3. MIDAZOLAM [Suspect]
     Active Substance: MIDAZOLAM

REACTIONS (3)
  - Rhabdomyolysis [Recovering/Resolving]
  - Off label use [Recovering/Resolving]
  - Acute kidney injury [Recovering/Resolving]
